FAERS Safety Report 13333274 (Version 1)
Quarter: 2017Q1

REPORT INFORMATION
  Report Type: Spontaneous
  Country: DE (occurrence: DE)
  Receive Date: 20170314
  Receipt Date: 20170314
  Transmission Date: 20170428
  Serious: Yes (Other)
  Sender: FDA-Public Use
  Company Number: PHHY2017DE037799

PATIENT
  Sex: Male

DRUGS (2)
  1. IMATINIB [Suspect]
     Active Substance: IMATINIB
     Indication: PRODUCT USED FOR UNKNOWN INDICATION
     Dosage: UNK
     Route: 048
     Dates: start: 1999
  2. IMATINIB [Suspect]
     Active Substance: IMATINIB
     Dosage: 200 MG, QD
     Route: 048

REACTIONS (1)
  - Cholangiocarcinoma [Unknown]

NARRATIVE: CASE EVENT DATE: 20150801
